FAERS Safety Report 8290867-1 (Version None)
Quarter: 2012Q2

REPORT INFORMATION
  Report Type: 
  Country: None (occurrence: None)
  Receive Date: 20120417
  Receipt Date: 20110509
  Transmission Date: 20120825
  Serious: No
  Sender: FDA-Public Use
  Company Number: US-ASTRAZENECA-2006UW08965

PATIENT
  Age: 79 Year
  Sex: Female
  Weight: 65.3 kg

DRUGS (4)
  1. NEXIUM [Suspect]
     Indication: GASTROOESOPHAGEAL REFLUX DISEASE
     Route: 048
  2. PRILOSEC [Suspect]
     Route: 048
  3. HUMIRA [Concomitant]
  4. METHTREXATE [Concomitant]

REACTIONS (6)
  - ABDOMINAL DISTENSION [None]
  - ADVERSE EVENT [None]
  - BOWEL MOVEMENT IRREGULARITY [None]
  - DRUG INEFFECTIVE [None]
  - DRUG DOSE OMISSION [None]
  - ABNORMAL FAECES [None]
